FAERS Safety Report 5478939-8 (Version None)
Quarter: 2007Q4

REPORT INFORMATION
  Report Type: 
  Country: None (occurrence: None)
  Receive Date: 20071006
  Receipt Date: 20070925
  Transmission Date: 20080405
  Serious: Yes (Other)
  Sender: FDA-Public Use
  Company Number: US-PFIZER INC-2007052108

PATIENT
  Sex: Female
  Weight: 77.272 kg

DRUGS (6)
  1. CHANTIX [Suspect]
     Indication: TOBACCO ABUSE
     Route: 048
     Dates: start: 20070401, end: 20070601
  2. MELOXICAM [Concomitant]
  3. AMBIEN [Concomitant]
  4. MOBIC [Concomitant]
  5. ALL OTHER THERAPEUTIC PRODUCTS [Concomitant]
  6. CYMBALTA [Concomitant]

REACTIONS (6)
  - ARTHROPOD BITE [None]
  - DIZZINESS [None]
  - FEELING ABNORMAL [None]
  - IMPAIRED HEALING [None]
  - LYME DISEASE [None]
  - PARAESTHESIA [None]
